FAERS Safety Report 9164781 (Version 2)
Quarter: 2013Q1

REPORT INFORMATION
  Report Type: Spontaneous
  Country: FR (occurrence: FR)
  Receive Date: 20130315
  Receipt Date: 20130321
  Transmission Date: 20140127
  Serious: Yes (Hospitalization)
  Sender: FDA-Public Use
  Company Number: FR-PFIZER INC-FR-WYE-G05720010

PATIENT
  Age: 48 Year
  Sex: Male

DRUGS (14)
  1. TAZOCILLINE [Suspect]
     Indication: PNEUMONIA
     Dosage: UNK
     Route: 051
     Dates: start: 20100119, end: 20100206
  2. TAZOCILLINE [Suspect]
     Indication: PNEUMONIA
  3. VANCOMYCIN HCL [Suspect]
     Indication: PNEUMONIA
     Dosage: UNKNOWN
     Route: 051
     Dates: start: 20091230, end: 20100206
  4. VANCOMYCIN HCL [Suspect]
     Indication: PNEUMONIA
  5. AUGMENTIN [Suspect]
     Indication: PNEUMONIA
     Dosage: UNKNOWN
     Route: 065
     Dates: start: 20091225, end: 20091230
  6. AUGMENTIN [Suspect]
     Indication: PNEUMONIA
  7. CIFLOX [Suspect]
     Indication: PNEUMONIA
     Dosage: UNKNOWN
     Route: 065
     Dates: start: 20091225, end: 20100206
  8. CIFLOX [Suspect]
     Indication: PNEUMONIA
  9. AMIKACIN [Suspect]
     Indication: PNEUMONIA
     Dosage: UNKNOWN
     Route: 051
     Dates: start: 20091225, end: 20091230
  10. AMIKACIN [Suspect]
     Indication: PNEUMONIA
  11. FORTUM [Suspect]
     Indication: PNEUMONIA
     Dosage: UNKNOWN
     Route: 051
     Dates: start: 20091230, end: 20100119
  12. FORTUM [Suspect]
     Indication: PNEUMONIA
  13. FLAGYL [Suspect]
     Indication: PNEUMONIA
     Dosage: UNKNOWN
     Route: 065
     Dates: start: 20091230, end: 20100119
  14. FLAGYL [Suspect]
     Indication: PNEUMONIA

REACTIONS (4)
  - Drug reaction with eosinophilia and systemic symptoms [Recovered/Resolved]
  - Haemoglobin decreased [Recovered/Resolved]
  - Skin exfoliation [Recovered/Resolved]
  - Liver function test abnormal [Recovered/Resolved]
